FAERS Safety Report 4375805-6 (Version None)
Quarter: 2004Q2

REPORT INFORMATION
  Report Type: 
  Country: None (occurrence: None)
  Receive Date: 20040611
  Receipt Date: 20031007
  Transmission Date: 20050107
  Serious: Yes (Other)
  Sender: FDA-Public Use
  Company Number: PHNU2003DE03617

PATIENT
  Age: 35 Year
  Sex: Female

DRUGS (1)
  1. TEGRETOL-XR [Suspect]
     Indication: CONVULSION
     Dosage: 200 MG, BID
     Route: 048

REACTIONS (4)
  - BREECH PRESENTATION [None]
  - CAESAREAN SECTION [None]
  - DRUG EXPOSURE DURING PREGNANCY [None]
  - PLACENTA PRAEVIA [None]
